FAERS Safety Report 16006000 (Version 1)
Quarter: 2019Q1

REPORT INFORMATION
  Report Type: Spontaneous
  Country: US (occurrence: US)
  Receive Date: 20190226
  Receipt Date: 20190226
  Transmission Date: 20190418
  Serious: No
  Sender: FDA-Public Use
  Company Number: None

PATIENT
  Age: 77 Year
  Sex: Male
  Weight: 62.1 kg

DRUGS (2)
  1. BENZONATATE 200 MG STRIDES [Suspect]
     Active Substance: BENZONATATE
     Indication: THROAT CLEARING
     Dosage: ?          QUANTITY:1 CAPSULE(S);?
     Route: 048
     Dates: start: 20190221, end: 20190224
  2. BENZONATATE 200 MG STRIDES [Suspect]
     Active Substance: BENZONATATE
     Indication: NASAL CONGESTION
     Dosage: ?          QUANTITY:1 CAPSULE(S);?
     Route: 048
     Dates: start: 20190221, end: 20190224

REACTIONS (3)
  - Somnolence [None]
  - Dysuria [None]
  - Disorientation [None]

NARRATIVE: CASE EVENT DATE: 20190222
